FAERS Safety Report 7003658-6 (Version None)
Quarter: 2010Q3

REPORT INFORMATION
  Report Type: 
  Country: None (occurrence: None)
  Receive Date: 20100920
  Receipt Date: 20090618
  Transmission Date: 20110219
  Serious: No
  Sender: FDA-Public Use
  Company Number: US-WYE-H09856709

PATIENT
  Age: 41 Year
  Sex: Male

DRUGS (2)
  1. PROTONIX [Suspect]
     Indication: GASTRITIS
     Route: 048
     Dates: start: 20090501, end: 20090101
  2. PROTONIX [Suspect]
     Indication: GASTROOESOPHAGEAL REFLUX DISEASE
     Dosage: TOOK 1/2 TABLET AS ADVISED BY HIS HCP
     Route: 048
     Dates: start: 20090612

REACTIONS (2)
  - ABDOMINAL DISTENSION [None]
  - DRUG INEFFECTIVE [None]
